FAERS Safety Report 4411009-6 (Version None)
Quarter: 2004Q3

REPORT INFORMATION
  Report Type: 
  Country: None (occurrence: None)
  Receive Date: 20040729
  Receipt Date: 20040719
  Transmission Date: 20050211
  Serious: Yes (Death, Other)
  Sender: FDA-Public Use
  Company Number: US-BRISTOL-MYERS SQUIBB COMPANY-12644613

PATIENT
  Age: 59 Year
  Sex: Male

DRUGS (2)
  1. COUMADIN [Suspect]
     Route: 048
  2. INSULIN [Concomitant]
     Indication: DIABETES MELLITUS

REACTIONS (6)
  - COLON CANCER METASTATIC [None]
  - DISEASE PROGRESSION [None]
  - ECCHYMOSIS [None]
  - HAEMORRHAGE [None]
  - MEDICATION ERROR [None]
  - OVERDOSE [None]
